FAERS Safety Report 6187954-0 (Version None)
Quarter: 2009Q2

REPORT INFORMATION
  Report Type: 
  Country: None (occurrence: None)
  Receive Date: 20090513
  Receipt Date: 20090504
  Transmission Date: 20091009
  Serious: Yes (Hospitalization)
  Sender: FDA-Public Use
  Company Number: US-ROCHE-623380

PATIENT
  Age: 81 Year
  Sex: Female

DRUGS (4)
  1. BONIVA [Suspect]
     Indication: DRUG USE FOR UNKNOWN INDICATION
     Dosage: MISSED HER DOSE ON 03 MARCH 2009
     Route: 065
     Dates: start: 20080301
  2. METOPROLOL [Concomitant]
     Dosage: DRUG: METROPROLOL
  3. HYDRALAZINE HCL [Concomitant]
  4. GLYBURIDE [Concomitant]

REACTIONS (2)
  - ASTHMA [None]
  - DYSPNOEA [None]
